FAERS Safety Report 15439554 (Version 1)
Quarter: 2018Q3

REPORT INFORMATION
  Report Type: Spontaneous
  Country: US (occurrence: US)
  Receive Date: 20180924
  Receipt Date: 20180924
  Transmission Date: 20181010
  Serious: No
  Sender: FDA-Public Use
  Company Number: None

PATIENT
  Age: 77 Year
  Sex: Female

DRUGS (1)
  1. IBRANCE [Suspect]
     Active Substance: PALBOCICLIB
     Route: 048
     Dates: start: 201805

REACTIONS (4)
  - Hypoaesthesia [None]
  - Palmar-plantar erythrodysaesthesia syndrome [None]
  - Neuropathy peripheral [None]
  - Skin reaction [None]

NARRATIVE: CASE EVENT DATE: 20180921
